FAERS Safety Report 10750802 (Version 1)
Quarter: 2015Q1

REPORT INFORMATION
  Report Type: Spontaneous
  Country: US (occurrence: None)
  Receive Date: 20150128
  Receipt Date: 20150128
  Transmission Date: 20150721
  Serious: Yes (Hospitalization, Other)
  Sender: FDA-Public Use
  Company Number: LH201500034

PATIENT
  Age: 26 Year
  Sex: Female

DRUGS (2)
  1. MAKENA [Suspect]
     Active Substance: HYDROXYPROGESTERONE CAPROATE
     Indication: OFF LABEL USE
     Route: 030
  2. MAKENA [Suspect]
     Active Substance: HYDROXYPROGESTERONE CAPROATE
     Indication: PREMATURE LABOUR
     Route: 030

REACTIONS (4)
  - Uterine rupture [None]
  - Off label use [None]
  - Exposure during pregnancy [None]
  - Caesarean section [None]

NARRATIVE: CASE EVENT DATE: 20141228
